FAERS Safety Report 9408199 (Version 1)
Quarter: 2013Q3

REPORT INFORMATION
  Report Type: Spontaneous
  Country: US (occurrence: US)
  Receive Date: 20130718
  Receipt Date: 20130718
  Transmission Date: 20140515
  Serious: Yes (Other)
  Sender: FDA-Public Use
  Company Number: US-TEVA-418872USA

PATIENT
  Age: 58 Year
  Sex: Female
  Weight: 65.38 kg

DRUGS (3)
  1. PROAIR HFA [Suspect]
     Indication: ASTHMA
     Route: 055
  2. ADVAIR [Concomitant]
     Indication: ASTHMA
  3. T-TUSSIN [Concomitant]

REACTIONS (6)
  - Asthma [Unknown]
  - Respiratory tract infection [Unknown]
  - Asthma [Unknown]
  - Cough [Not Recovered/Not Resolved]
  - Hypertension [Unknown]
  - Pyrexia [Unknown]
